APPROVED DRUG PRODUCT: PROPANTHELINE BROMIDE
Active Ingredient: PROPANTHELINE BROMIDE
Strength: 15MG
Dosage Form/Route: TABLET;ORAL
Application: A083151 | Product #001
Applicant: WATSON LABORATORIES INC
Approved: Approved Prior to Jan 1, 1982 | RLD: No | RS: No | Type: DISCN